FAERS Safety Report 15743521 (Version 1)
Quarter: 2018Q4

REPORT INFORMATION
  Report Type: Spontaneous
  Country: GB (occurrence: GB)
  Receive Date: 20181220
  Receipt Date: 20181220
  Transmission Date: 20190205
  Serious: Yes (Other)
  Sender: FDA-Public Use
  Company Number: GB-TEVA-2018-GB-988228

PATIENT
  Age: 68 Year
  Sex: Female
  Weight: 91.62 kg

DRUGS (2)
  1. OMEPRAZOLE. [Concomitant]
     Active Substance: OMEPRAZOLE
     Route: 065
  2. CLONIDINE HYDROCHLORIDE. [Suspect]
     Active Substance: CLONIDINE HYDROCHLORIDE
     Indication: NIGHT SWEATS
     Dosage: 100 MICROGRAM DAILY;
     Route: 048
     Dates: start: 20181011, end: 20181120

REACTIONS (6)
  - Dry eye [Recovering/Resolving]
  - Dry mouth [Recovering/Resolving]
  - Drug ineffective [Unknown]
  - Dizziness [Recovering/Resolving]
  - Insomnia [Recovering/Resolving]
  - Fatigue [Recovering/Resolving]

NARRATIVE: CASE EVENT DATE: 20181011
